FAERS Safety Report 4415895-5 (Version None)
Quarter: 2004Q3

REPORT INFORMATION
  Report Type: 
  Country: None (occurrence: None)
  Receive Date: 20040805
  Receipt Date: 20040430
  Transmission Date: 20050211
  Serious: Yes (Other)
  Sender: FDA-Public Use
  Company Number: US-GLAXOSMITHKLINE-A0510154A

PATIENT
  Sex: Male

DRUGS (1)
  1. AVANDAMET [Suspect]
     Indication: ILL-DEFINED DISORDER
     Route: 048
     Dates: start: 20020101, end: 20030101

REACTIONS (1)
  - CARDIAC FAILURE CONGESTIVE [None]
